FAERS Safety Report 9202036 (Version 2)
Quarter: 2013Q4

REPORT INFORMATION
  Report Type: Spontaneous
  Country: US (occurrence: US)
  Receive Date: 20130401
  Receipt Date: 20131202
  Transmission Date: 20140711
  Serious: Yes (Hospitalization, Other)
  Sender: FDA-Public Use
  Company Number: US-BAYER-2013-038425

PATIENT
  Age: 32 Year
  Sex: Female
  Weight: 80.73 kg

DRUGS (5)
  1. YAZ [Suspect]
     Indication: CONTRACEPTION
  2. YASMIN [Suspect]
  3. CIPRODEX [CIPROFLOXACIN HYDROCHLORIDE] [Concomitant]
     Dosage: UNK
     Dates: start: 20090630
  4. PEPTO-BISMOL [Concomitant]
  5. ZANTAC [Concomitant]

REACTIONS (5)
  - Cholecystitis chronic [None]
  - Gallbladder injury [None]
  - Injury [None]
  - Pain [None]
  - Pain [None]
